FAERS Safety Report 22780350 (Version 2)
Quarter: 2025Q3

REPORT INFORMATION
  Report Type: Spontaneous
  Country: US (occurrence: US)
  Receive Date: 20230803
  Receipt Date: 20250912
  Transmission Date: 20251021
  Serious: No
  Sender: NOVARTIS
  Company Number: US-SANDOZ-SDZ2023US008767

PATIENT
  Sex: Male
  Weight: 143.18 kg

DRUGS (4)
  1. COSENTYX [Suspect]
     Active Substance: SECUKINUMAB
     Indication: Product used for unknown indication
     Route: 065
  2. DEXAMETHASONE [Suspect]
     Active Substance: DEXAMETHASONE
     Indication: Hidradenitis
     Route: 065
  3. CLOBETASOL [Suspect]
     Active Substance: CLOBETASOL
     Indication: Hidradenitis
     Dosage: UNK UNK, BID
     Route: 065
  4. DOXYCYCLINE [Suspect]
     Active Substance: DOXYCYCLINE
     Indication: Hidradenitis
     Dosage: 200 MG, QD (100 MG, BID)
     Route: 065

REACTIONS (1)
  - Drug ineffective [Unknown]
